FAERS Safety Report 8519428-3 (Version None)
Quarter: 2012Q3

REPORT INFORMATION
  Report Type: 
  Country: None (occurrence: None)
  Receive Date: 20120718
  Receipt Date: 20120716
  Transmission Date: 20120928
  Serious: No
  Sender: FDA-Public Use
  Company Number: US-TEVA-348775USA

PATIENT
  Sex: Female

DRUGS (6)
  1. NUVIGIL [Suspect]
     Indication: VISION BLURRED
  2. AVONEX [Concomitant]
     Indication: MULTIPLE SCLEROSIS
  3. BRAZILLIAN LASER HAIR REMOVAL [Suspect]
  4. ORAL CONTRACEPTIVE NOS [Concomitant]
     Indication: CONTRACEPTION
  5. NUVIGIL [Suspect]
     Indication: ASTHENIA
     Dosage: 150 MILLIGRAM;
     Route: 048
     Dates: start: 20120710
  6. VITAMIN TAB [Concomitant]

REACTIONS (3)
  - DYSURIA [None]
  - BURNS SECOND DEGREE [None]
  - OFF LABEL USE [None]
